FAERS Safety Report 7127943-2 (Version None)
Quarter: 2010Q4

REPORT INFORMATION
  Report Type: 
  Country: None (occurrence: None)
  Receive Date: 20101130
  Receipt Date: 20101125
  Transmission Date: 20110411
  Serious: Yes (Other)
  Sender: FDA-Public Use
  Company Number: ES-ASTRAZENECA-2010SE21143

PATIENT
  Age: 66 Year
  Sex: Male
  Weight: 96 kg

DRUGS (4)
  1. ATACAND [Suspect]
     Indication: TENSION
     Dosage: ONE TABLET PER DAY
     Route: 048
     Dates: start: 20091001
  2. ASTUDAL [Concomitant]
     Indication: HYPERTENSION
     Route: 048
     Dates: start: 19800101
  3. CARDURA [Concomitant]
     Indication: HYPERTENSION
     Route: 048
     Dates: start: 19990101
  4. DIABEN [Concomitant]
     Indication: DIABETES MELLITUS
     Route: 048
     Dates: start: 20050101

REACTIONS (6)
  - BLOOD PRESSURE INCREASED [None]
  - DISCOMFORT [None]
  - DRUG INEFFECTIVE [None]
  - HEADACHE [None]
  - MEDICATION RESIDUE [None]
  - TENSION [None]
